FAERS Safety Report 25751488 (Version 1)
Quarter: 2025Q3

REPORT INFORMATION
  Report Type: Spontaneous
  Country: EU (occurrence: EU)
  Receive Date: 20250902
  Receipt Date: 20250902
  Transmission Date: 20251020
  Serious: Yes (Other)
  Sender: NOVO NORDISK
  Company Number: EU-NOVOPROD-1508534

PATIENT
  Sex: Female

DRUGS (1)
  1. WEGOVY [Suspect]
     Active Substance: SEMAGLUTIDE
     Indication: Product used for unknown indication

REACTIONS (10)
  - Excessive skin [Unknown]
  - Body dysmorphic disorder [Unknown]
  - Pyrexia [Unknown]
  - Feeding disorder [Unknown]
  - Food aversion [Unknown]
  - Alopecia [Unknown]
  - Fatigue [Unknown]
  - Vomiting [Unknown]
  - Dizziness [Unknown]
  - Weight decreased [Unknown]
